FAERS Safety Report 18165881 (Version 1)
Quarter: 2020Q3

REPORT INFORMATION
  Report Type: Spontaneous
  Country: DE (occurrence: DE)
  Receive Date: 20200819
  Receipt Date: 20200819
  Transmission Date: 20201103
  Serious: Yes (Other)
  Sender: FDA-Public Use
  Company Number: DE-TEVA-2020-DE-1814803

PATIENT
  Age: 63 Year
  Sex: Female

DRUGS (27)
  1. VALSARTAN ABZ 160 MG [Suspect]
     Active Substance: VALSARTAN
     Dosage: 160 MILLIGRAM DAILY;
     Route: 048
     Dates: start: 2017, end: 2018
  2. VALSARTAN DURA 160MG FILMTABLETTEN [Suspect]
     Active Substance: VALSARTAN
     Dosage: 160 MILLIGRAM DAILY;
     Route: 048
  3. BETAGALEN CREME [Concomitant]
  4. EFEROX 175 [Concomitant]
  5. VALSARTAN CT 160 MG [Suspect]
     Active Substance: VALSARTAN
     Dosage: 160 MILLIGRAM DAILY;
     Route: 048
     Dates: start: 2018
  6. AMLODIPIN BESIL DEXCEL 5 MG [Concomitant]
  7. CLOBEGALEN [Concomitant]
  8. PANTOPRAZOL ACTAVIS 40 MG [Concomitant]
  9. DERMOXIN [Concomitant]
  10. AMOXICILLIN ABZ 1000 MG [Concomitant]
  11. VOLTAREN DISPERS 46.5 MG [Concomitant]
  12. AMOXICLAV BASI 875 MG/125 MG [Concomitant]
  13. QUETIAPIN [Concomitant]
     Active Substance: QUETIAPINE
  14. MIANSERIN?NEURAX 30 MG [Concomitant]
  15. HYDROGALEN CREME [Concomitant]
  16. NOVAMINSULFON 500 MG LICHTENSTEIN [Concomitant]
  17. CLINDAHEXAL 300 [Concomitant]
  18. IBUPROFEN 600 [Concomitant]
     Active Substance: IBUPROFEN
  19. BAYOTENSIN AKUT PHIOLEN [Concomitant]
  20. TRIAMGALEN [Concomitant]
     Active Substance: TRIAMCINOLONE ACETONIDE
  21. VALSACOR 160 MG FILMTABLETTEN [Suspect]
     Active Substance: VALSARTAN
     Dosage: 160 MILLIGRAM DAILY;
     Route: 048
  22. RISPERIDON ATID 1 MG [Concomitant]
  23. MCP AL 10 [Concomitant]
  24. VALSARTAN HEUMANN 160 FILMTABLETTEN [Suspect]
     Active Substance: VALSARTAN
     Dosage: 160 MILLIGRAM DAILY;
     Route: 048
  25. CALCIUM SANDOZ FORTE [Concomitant]
     Active Substance: CALCIUM CARBONATE\CALCIUM LACTATE GLUCONATE
  26. JANUMET 50/1000 MG FILMTABLETTEN [Concomitant]
  27. METFORMIN [Concomitant]
     Active Substance: METFORMIN HYDROCHLORIDE

REACTIONS (5)
  - Product impurity [Unknown]
  - Quality of life decreased [Not Recovered/Not Resolved]
  - Mental disorder [Not Recovered/Not Resolved]
  - Uterine leiomyoma [Not Recovered/Not Resolved]
  - Sarcoma uterus [Not Recovered/Not Resolved]

NARRATIVE: CASE EVENT DATE: 2020
